FAERS Safety Report 4580351-0 (Version None)
Quarter: 2005Q1

REPORT INFORMATION
  Report Type: 
  Country: None (occurrence: None)
  Receive Date: 20050214
  Receipt Date: 20040105
  Transmission Date: 20050727
  Serious: No
  Sender: FDA-Public Use
  Company Number: US-GLAXOSMITHKLINE-A0491357A

PATIENT
  Age: 60 Year
  Sex: Male

DRUGS (8)
  1. LAMICTAL [Suspect]
     Indication: BIPOLAR DISORDER
     Dosage: 100MG PER DAY
     Route: 048
     Dates: start: 20031001
  2. ZOLOFT [Concomitant]
  3. KLONOPIN [Concomitant]
  4. NEXIUM [Concomitant]
  5. PROSCAR [Concomitant]
  6. BLOCADREN [Concomitant]
  7. LOPID [Concomitant]
  8. ASPIRIN [Concomitant]

REACTIONS (2)
  - URINARY RETENTION [None]
  - VISION BLURRED [None]
